FAERS Safety Report 24573579 (Version 1)
Quarter: 2024Q4

REPORT INFORMATION
  Report Type: Spontaneous
  Country: GB (occurrence: GB)
  Receive Date: 20241103
  Receipt Date: 20241103
  Transmission Date: 20250115
  Serious: Yes (Other)
  Sender: DEXCEL
  Company Number: None

PATIENT
  Age: 89 Year
  Sex: Female

DRUGS (9)
  1. AmlodipineAMLODIPINE (Specific Scientific Product SCP2923) [Concomitant]
  2. MacrogolMACROGOL (Specific Substance SUB7843) [Concomitant]
  3. SennaSENNA (Specific Scientific Product SCP2145) [Concomitant]
  4. ExemestaneEXEMESTANE [Concomitant]
  5. OxycodoneOXYCODONE (Specific Substance SUB862) [Concomitant]
  6. EnoxaparinENOXAPARIN (Specific Scientific Product SCP671) [Concomitant]
  7. OMEPRAZOLE [Suspect]
     Active Substance: OMEPRAZOLE
  8. AspirinASPIRIN [Concomitant]
  9. AtenololATENOLOL [Concomitant]

REACTIONS (1)
  - Hypomagnesaemia [Unknown]
